FAERS Safety Report 5504300-3 (Version None)
Quarter: 2007Q4

REPORT INFORMATION
  Report Type: 
  Country: None (occurrence: None)
  Receive Date: 20071101
  Receipt Date: 20071027
  Transmission Date: 20080405
  Serious: Yes (Other)
  Sender: FDA-Public Use
  Company Number: US-ALLERGAN-0711907US

PATIENT
  Sex: Female

DRUGS (3)
  1. BOTOX COSMETIC [Suspect]
     Indication: SKIN WRINKLING
     Dosage: 30 UNITS, SINGLE
     Route: 030
     Dates: start: 20071023, end: 20071023
  2. PRILOSEC [Concomitant]
  3. TOPROL-XL [Concomitant]

REACTIONS (3)
  - BLINDNESS [None]
  - CATATONIA [None]
  - MIGRAINE [None]
